FAERS Safety Report 8830060 (Version 1)
Quarter: 2012Q4

REPORT INFORMATION
  Report Type: Spontaneous
  Country: US (occurrence: None)
  Receive Date: 20121005
  Receipt Date: 20121005
  Transmission Date: 20130627
  Serious: Yes (Other)
  Sender: FDA-Public Use
  Company Number: None

PATIENT
  Age: 7 Year
  Sex: Male
  Weight: 61 kg

DRUGS (3)
  1. SINGULAR [Suspect]
     Indication: ALLERGIC ASTHMA
     Dosage: 5 mg, QD, Oral Chewable
     Route: 048
     Dates: start: 20120813, end: 20120901
  2. FLUTICASONE [Concomitant]
  3. CETIRIZINE [Concomitant]

REACTIONS (3)
  - Hostility [None]
  - Screaming [None]
  - Aggression [None]
